FAERS Safety Report 20984742 (Version 1)
Quarter: 2022Q2

REPORT INFORMATION
  Report Type: Spontaneous
  Country: US (occurrence: US)
  Receive Date: 20220621
  Receipt Date: 20220621
  Transmission Date: 20220720
  Serious: No
  Sender: FDA-Public Use
  Company Number: US-ALKEM LABORATORIES LIMITED-US-ALKEM-2022-05462

PATIENT

DRUGS (4)
  1. EVEROLIMUS [Suspect]
     Active Substance: EVEROLIMUS
     Indication: Metastatic renal cell carcinoma
     Dosage: 10 MILLIGRAM, OD
     Route: 048
  2. TELAGLENASTAT [Suspect]
     Active Substance: TELAGLENASTAT
     Indication: Metastatic renal cell carcinoma
     Dosage: 800 MILLIGRAM, TWICE DAILY
     Route: 048
  3. TELAGLENASTAT [Suspect]
     Active Substance: TELAGLENASTAT
     Dosage: 600 MILLIGRAM
     Route: 048
  4. TELAGLENASTAT [Suspect]
     Active Substance: TELAGLENASTAT
     Dosage: 400 MILLIGRAM
     Route: 048

REACTIONS (1)
  - Therapy partial responder [Unknown]
